FAERS Safety Report 24293294 (Version 1)
Quarter: 2024Q3

REPORT INFORMATION
  Report Type: Spontaneous
  Country: US (occurrence: None)
  Receive Date: 20240906
  Receipt Date: 20240906
  Transmission Date: 20241017
  Serious: No
  Sender: DOMPE FARMACEUTICI
  Company Number: US-FARMAPROD-202308-202312-3716

PATIENT
  Age: 44 Year
  Sex: Female
  Weight: 72.57 kg

DRUGS (14)
  1. OXERVATE [Suspect]
     Active Substance: CENEGERMIN-BKBJ
     Indication: Neurotrophic keratopathy
     Route: 047
     Dates: start: 20231207
  2. MULTIVITAMINS TABLET [Concomitant]
  3. VITAMIN D3 [Concomitant]
     Active Substance: CHOLECALCIFEROL
  4. FLAREX [Concomitant]
     Active Substance: FLUOROMETHOLONE ACETATE
  5. POLYVINYL ALCOHOL\POVIDONE [Concomitant]
     Active Substance: POLYVINYL ALCOHOL\POVIDONE
     Dosage: 2.7%-2%
  6. METHOCARBAMOL [Concomitant]
     Active Substance: METHOCARBAMOL
  7. LEVOTHYROXINE SODIUM [Concomitant]
     Active Substance: LEVOTHYROXINE SODIUM
  8. SSD [Concomitant]
     Active Substance: SILVER SULFADIAZINE
  9. ONDANSETRON HYDROCHLORIDE [Concomitant]
     Active Substance: ONDANSETRON HYDROCHLORIDE
  10. TRETINOIN [Concomitant]
     Active Substance: TRETINOIN
  11. FISH OIL [Concomitant]
     Active Substance: FISH OIL
     Dosage: 120-180 MG
  12. VITAMIN D3 [Concomitant]
     Active Substance: CHOLECALCIFEROL
  13. OZEMPIC [Concomitant]
     Active Substance: SEMAGLUTIDE
     Dosage: 1MG/0.75 ML, PEN INJECTOR
  14. DEXTROAMPHET SACCHARAT, AMPHET ASPARTATE, DEXTROAMPHET SULFATE AND AMP [Concomitant]
     Active Substance: AMPHETAMINE ASPARTATE\AMPHETAMINE SULFATE\DEXTROAMPHETAMINE SACCHARATE\DEXTROAMPHETAMINE SULFATE

REACTIONS (2)
  - Eye pain [Unknown]
  - Photophobia [Unknown]

NARRATIVE: CASE EVENT DATE: 20231213
